FAERS Safety Report 16398806 (Version 1)
Quarter: 2019Q2

REPORT INFORMATION
  Report Type: Spontaneous
  Country: US (occurrence: US)
  Receive Date: 20190501
  Receipt Date: 20190501
  Transmission Date: 20190711
  Serious: No
  Sender: FDA-Public Use
  Company Number: None

PATIENT
  Age: 37 Year
  Sex: Male
  Weight: 83 kg

DRUGS (1)
  1. ALBUTEROL HFA 90MCG 90 MCG INH [Suspect]
     Active Substance: ALBUTEROL SULFATE
     Indication: ASTHMA
     Dosage: ?          OTHER FREQUENCY:Q4H;?
     Route: 055
     Dates: start: 201903, end: 201904

REACTIONS (1)
  - Therapeutic product effect incomplete [None]

NARRATIVE: CASE EVENT DATE: 20190416
